FAERS Safety Report 8100332-X (Version None)
Quarter: 2012Q1

REPORT INFORMATION
  Report Type: 
  Country: None (occurrence: None)
  Receive Date: 20120129
  Receipt Date: 20111123
  Transmission Date: 20120608
  Serious: No
  Sender: FDA-Public Use
  Company Number: US-ABBOTT-11P-163-0877791-00

PATIENT
  Age: 30 Year
  Sex: Female

DRUGS (1)
  1. HUMIRA [Suspect]
     Indication: PSORIASIS
     Dates: start: 20111103

REACTIONS (6)
  - NERVOUSNESS [None]
  - PSORIASIS [None]
  - ANXIETY [None]
  - PARAESTHESIA [None]
  - HYPOAESTHESIA [None]
  - DRUG EFFECT DECREASED [None]
